FAERS Safety Report 20392983 (Version 3)
Quarter: 2022Q3

REPORT INFORMATION
  Report Type: Report from Study
  Country: ES (occurrence: ES)
  Receive Date: 20220128
  Receipt Date: 20220909
  Transmission Date: 20221026
  Serious: Yes (Death, Other)
  Sender: FDA-Public Use
  Company Number: ES-TAKEDA-2022TUS004750

PATIENT
  Age: 71 Year
  Sex: Female

DRUGS (1)
  1. MOBOCERTINIB [Suspect]
     Active Substance: MOBOCERTINIB
     Indication: Lung neoplasm malignant
     Dosage: UNK
     Route: 065
     Dates: start: 20201231, end: 20210517

REACTIONS (4)
  - Intracranial pressure increased [Fatal]
  - Metastases to meninges [Fatal]
  - Asthenia [Unknown]
  - Diarrhoea [Unknown]
